FAERS Safety Report 9715845 (Version 1)
Quarter: 2013Q4

REPORT INFORMATION
  Report Type: Spontaneous
  Country: US (occurrence: None)
  Receive Date: 20131126
  Receipt Date: 20131126
  Transmission Date: 20140711
  Serious: No
  Sender: FDA-Public Use
  Company Number: None

PATIENT
  Age: 72 Year
  Sex: Male

DRUGS (1)
  1. AVELOX [Suspect]
     Indication: ATYPICAL PNEUMONIA
     Dosage: 400MG IN A BAG OF IV FLUID ONCE DAILY INTO A VEIN
     Route: 042
     Dates: start: 20131010, end: 20131019

REACTIONS (3)
  - Contusion [None]
  - Mass [None]
  - Tendon rupture [None]
